FAERS Safety Report 7892136-8 (Version None)
Quarter: 2011Q4

REPORT INFORMATION
  Report Type: 
  Country: None (occurrence: None)
  Receive Date: 20111103
  Receipt Date: 20111026
  Transmission Date: 20120403
  Serious: No
  Sender: FDA-Public Use
  Company Number: US-AMGEN-USASP2011039513

PATIENT
  Age: 49 Year
  Sex: Female
  Weight: 82.993 kg

DRUGS (5)
  1. METHOTREXATE [Concomitant]
     Dosage: 17.5 MG, QWK
  2. PREDNISONE [Concomitant]
     Dosage: 2.5 MG, HALF TABLET QD,OCCASIONALLY
  3. ENBREL [Suspect]
     Indication: RHEUMATOID ARTHRITIS
     Dosage: 50 MG, QWK
     Route: 058
     Dates: start: 20050301
  4. VICODIN [Concomitant]
     Dosage: UNK PRN
  5. MULTI-VITAMINS [Concomitant]
     Dosage: UNK UNK, PRN

REACTIONS (3)
  - TOOTH FRACTURE [None]
  - ROTATOR CUFF SYNDROME [None]
  - INJURY [None]
